FAERS Safety Report 8988706 (Version 2)
Quarter: 2013Q1

REPORT INFORMATION
  Report Type: Spontaneous
  Country: JP (occurrence: JP)
  Receive Date: 20121228
  Receipt Date: 20130118
  Transmission Date: 20140127
  Serious: Yes (Hospitalization)
  Sender: FDA-Public Use
  Company Number: JP-SANOFI-AVENTIS-2012SA094345

PATIENT
  Age: 76 Year
  Sex: Male
  Weight: 5 kg

DRUGS (2)
  1. FEXOFENADINE HYDROCHLORIDE [Suspect]
     Indication: NASOPHARYNGITIS
     Route: 065
  2. PARACETAMOL [Suspect]
     Indication: NASOPHARYNGITIS
     Route: 065

REACTIONS (8)
  - Cholestasis [Recovering/Resolving]
  - Jaundice [Recovering/Resolving]
  - Aspartate aminotransferase increased [Recovering/Resolving]
  - Alanine aminotransferase increased [Recovering/Resolving]
  - Blood alkaline phosphatase increased [Recovering/Resolving]
  - Blood bilirubin increased [Recovering/Resolving]
  - Bilirubin conjugated increased [Recovering/Resolving]
  - Biliary tract disorder [Recovering/Resolving]
